FAERS Safety Report 9249091 (Version 1)
Quarter: 2013Q2

REPORT INFORMATION
  Report Type: Spontaneous
  Country: DE (occurrence: DE)
  Receive Date: 20130423
  Receipt Date: 20130423
  Transmission Date: 20140414
  Serious: Yes (Hospitalization, Other)
  Sender: FDA-Public Use
  Company Number: DE-ELI_LILLY_AND_COMPANY-DE201304004802

PATIENT
  Sex: Male

DRUGS (12)
  1. ZYPREXA VELOTAB [Suspect]
     Dosage: 5 MG, UNKNOWN
     Route: 048
     Dates: start: 20121022, end: 20121024
  2. ZYPREXA VELOTAB [Suspect]
     Dosage: 10 MG, UNKNOWN
     Route: 048
     Dates: start: 20121025, end: 20121104
  3. ZYPREXA VELOTAB [Suspect]
     Dosage: 15 MG, UNKNOWN
     Route: 048
     Dates: start: 20121105, end: 20121109
  4. ZYPREXA VELOTAB [Suspect]
     Dosage: 10 MG, UNKNOWN
     Route: 048
     Dates: start: 20121120, end: 20121128
  5. ZYPREXA VELOTAB [Suspect]
     Dosage: 15 MG, UNKNOWN
     Route: 048
     Dates: start: 20121129, end: 20121202
  6. ZYPREXA VELOTAB [Suspect]
     Dosage: 20 MG, UNKNOWN
     Route: 048
     Dates: start: 20121203, end: 20121209
  7. ZYPREXA VELOTAB [Suspect]
     Dosage: 25 MG, QD
     Route: 048
     Dates: start: 20121210, end: 20121213
  8. ZYPREXA VELOTAB [Suspect]
     Dosage: 20 MG, UNKNOWN
     Route: 048
     Dates: start: 20121214, end: 20121216
  9. ZYPREXA VELOTAB [Suspect]
     Dosage: 10 MG, UNKNOWN
     Route: 048
     Dates: start: 20121217, end: 20121218
  10. DIAZEPAM [Concomitant]
  11. HALDOL [Concomitant]
  12. RISPERDAL [Concomitant]
     Dosage: UNK
     Dates: start: 20121008, end: 20121018

REACTIONS (5)
  - Alcohol abuse [Unknown]
  - Weight increased [Recovering/Resolving]
  - Drug ineffective [Unknown]
  - Prescribed overdose [Recovered/Resolved]
  - Intentional drug misuse [Recovered/Resolved]
